FAERS Safety Report 23685922 (Version 9)
Quarter: 2025Q2

REPORT INFORMATION
  Report Type: Report from Study
  Country: CA (occurrence: CA)
  Receive Date: 20240329
  Receipt Date: 20250602
  Transmission Date: 20250716
  Serious: Yes (Other)
  Sender: TAKEDA
  Company Number: CA-TAKEDA-2024TUS005462

PATIENT
  Age: 88 Year
  Sex: Female
  Weight: 62.7 kg

DRUGS (14)
  1. VEDOLIZUMAB [Suspect]
     Active Substance: VEDOLIZUMAB
     Indication: Colitis ulcerative
  2. VEDOLIZUMAB [Suspect]
     Active Substance: VEDOLIZUMAB
     Dosage: 300 MILLIGRAM, Q4WEEKS
     Dates: start: 20231128
  3. VEDOLIZUMAB [Suspect]
     Active Substance: VEDOLIZUMAB
  4. VEDOLIZUMAB [Suspect]
     Active Substance: VEDOLIZUMAB
  5. VEDOLIZUMAB [Suspect]
     Active Substance: VEDOLIZUMAB
  6. VEDOLIZUMAB [Suspect]
     Active Substance: VEDOLIZUMAB
  7. VEDOLIZUMAB [Suspect]
     Active Substance: VEDOLIZUMAB
  8. VEDOLIZUMAB [Suspect]
     Active Substance: VEDOLIZUMAB
  9. VEDOLIZUMAB [Suspect]
     Active Substance: VEDOLIZUMAB
  10. PREDNISONE [Suspect]
     Active Substance: PREDNISONE
     Indication: Product used for unknown indication
  11. VITAMIN D NOS [Concomitant]
     Active Substance: CHOLECALCIFEROL\ERGOCALCIFEROL
  12. BISOPROLOL [Concomitant]
     Active Substance: BISOPROLOL
  13. CELEBREX [Concomitant]
     Active Substance: CELECOXIB
  14. PANTOPRAZOLE [Concomitant]
     Active Substance: PANTOPRAZOLE

REACTIONS (17)
  - Colitis ulcerative [Unknown]
  - Macular degeneration [Unknown]
  - Polymyalgia rheumatica [Unknown]
  - Inflammation [Unknown]
  - Off label use [Unknown]
  - Peripheral swelling [Unknown]
  - Arthritis enteropathic [Unknown]
  - Weight decreased [Unknown]
  - Appetite disorder [Unknown]
  - Asthenia [Unknown]
  - Faeces soft [Unknown]
  - Affect lability [Unknown]
  - Anxiety [Unknown]
  - Therapeutic reaction time decreased [Unknown]
  - Abdominal pain upper [Recovered/Resolved]
  - Vision blurred [Unknown]
  - Headache [Unknown]

NARRATIVE: CASE EVENT DATE: 20231128
